FAERS Safety Report 5345669-2 (Version None)
Quarter: 2007Q2

REPORT INFORMATION
  Report Type: 
  Country: None (occurrence: None)
  Receive Date: 20070605
  Receipt Date: 20070523
  Transmission Date: 20071010
  Serious: Yes (Hospitalization)
  Sender: FDA-Public Use
  Company Number: IN-NOVOPROD-263902

PATIENT
  Sex: Male
  Weight: 63 kg

DRUGS (5)
  1. NOVOLOG MIX 70/30 [Suspect]
     Indication: DIABETES MELLITUS
     Dosage: 35 IU, QD
     Route: 058
     Dates: start: 20070511
  2. VOGLIBOSE [Concomitant]
     Dosage: .2 MG, QD
     Route: 048
     Dates: start: 20070511
  3. TELMISARTAN [Concomitant]
     Dosage: 20 UNK, QD
     Route: 048
     Dates: start: 20070511
  4. CEFEPIME [Concomitant]
     Dosage: 1 G, QD
     Route: 042
     Dates: start: 20070520
  5. METHYLCOBAL [Concomitant]
     Dosage: .5 MG, QD
     Route: 030
     Dates: start: 20070521

REACTIONS (1)
  - GENERALISED OEDEMA [None]
